FAERS Safety Report 10472781 (Version 1)
Quarter: 2014Q3

REPORT INFORMATION
  Report Type: Spontaneous
  Country: IT (occurrence: IT)
  Receive Date: 20140924
  Receipt Date: 20140924
  Transmission Date: 20150326
  Serious: Yes (Hospitalization)
  Sender: FDA-Public Use
  Company Number: IT-JNJFOC-20140915214

PATIENT
  Age: 101 Year
  Sex: Female
  Weight: 40 kg

DRUGS (5)
  1. LANOXIN [Suspect]
     Active Substance: DIGOXIN
     Indication: HYPERTENSIVE HEART DISEASE
     Route: 048
     Dates: end: 20140825
  2. ADALAT [Concomitant]
     Active Substance: NIFEDIPINE
     Indication: PRODUCT USED FOR UNKNOWN INDICATION
     Route: 048
     Dates: end: 20140824
  3. HALDOL [Suspect]
     Active Substance: HALOPERIDOL
     Indication: AGITATION
     Route: 048
     Dates: end: 20140824
  4. TALOFEN [Suspect]
     Active Substance: PROMAZINE HYDROCHLORIDE
     Indication: AGITATION
     Route: 048
     Dates: end: 20140824
  5. TALOFEN [Suspect]
     Active Substance: PROMAZINE HYDROCHLORIDE
     Indication: AGITATION
     Route: 048
     Dates: start: 20140904, end: 20140905

REACTIONS (3)
  - Dysphagia [Recovered/Resolved]
  - Drug abuse [Unknown]
  - Sopor [Recovered/Resolved]

NARRATIVE: CASE EVENT DATE: 20140825
